FAERS Safety Report 10185333 (Version 9)
Quarter: 2014Q4

REPORT INFORMATION
  Report Type: Spontaneous
  Country: US (occurrence: US)
  Receive Date: 20140521
  Receipt Date: 20141202
  Transmission Date: 20150528
  Serious: No
  Sender: FDA-Public Use
  Company Number: US-PFIZER INC-2014136620

PATIENT
  Age: 68 Year
  Sex: Male
  Weight: 60.32 kg

DRUGS (12)
  1. INSULIN [Concomitant]
     Active Substance: INSULIN NOS
     Dosage: UNK
  2. MELOXICAM. [Suspect]
     Active Substance: MELOXICAM
     Dosage: UNK
  3. DEVIL^S CLAW [Concomitant]
     Active Substance: UNSPECIFIED INGREDIENT
     Indication: ARTHRALGIA
     Dosage: UNK
  4. CELEBREX [Suspect]
     Active Substance: CELECOXIB
     Indication: COLON CANCER
     Dosage: 200 MG, DAILY (1 CAP AFTER LUNCH)
     Dates: start: 201405, end: 201405
  5. CELEBREX [Suspect]
     Active Substance: CELECOXIB
     Indication: PROSTATE CANCER
  6. LOVASTATIN. [Concomitant]
     Active Substance: LOVASTATIN
     Indication: CARDIAC DISORDER
     Dosage: 20 MG, UNK
  7. ASPIRIN. [Concomitant]
     Active Substance: ASPIRIN
     Dosage: 81 MG, DAILY
     Route: 048
  8. PRAVASTATIN [Concomitant]
     Active Substance: PRAVASTATIN\PRAVASTATIN SODIUM
     Indication: CARDIAC DISORDER
     Dosage: 20 MG, UNK
  9. LISINOPRIL. [Concomitant]
     Active Substance: LISINOPRIL
     Dosage: 5 MG, DAILY
  10. CAT^S CLAW [Concomitant]
     Active Substance: CAT^S CLAW
     Indication: ARTHRALGIA
     Dosage: UNK
  11. CELEBREX [Suspect]
     Active Substance: CELECOXIB
     Indication: OSTEOARTHRITIS
     Dosage: 200 MG, DAILY (1 CAP AFTER LUNCH)
     Route: 048
     Dates: start: 201405, end: 201405
  12. CELEBREX [Suspect]
     Active Substance: CELECOXIB
     Indication: PAIN IN EXTREMITY
     Dosage: 200 MG, DAILY (1 CAP AFTER LUNCH)
     Route: 048
     Dates: start: 201405, end: 201405

REACTIONS (7)
  - Ligament pain [Recovering/Resolving]
  - Abdominal discomfort [Recovered/Resolved]
  - Pain [Recovered/Resolved]
  - Bursitis [Unknown]
  - Insomnia [Unknown]
  - Product use issue [Not Recovered/Not Resolved]
  - Drug ineffective [Not Recovered/Not Resolved]

NARRATIVE: CASE EVENT DATE: 201405
